FAERS Safety Report 12270317 (Version 2)
Quarter: 2016Q3

REPORT INFORMATION
  Report Type: Report from Study
  Country: PL (occurrence: PL)
  Receive Date: 20160415
  Receipt Date: 20160802
  Transmission Date: 20161109
  Serious: Yes (Hospitalization, Other)
  Sender: FDA-Public Use
  Company Number: PL-ASTRAZENECA-2016SE38097

PATIENT
  Age: 23875 Day
  Sex: Male

DRUGS (8)
  1. AMLODIPINUM [Concomitant]
     Indication: HYPERTENSION
     Route: 048
  2. ROSUVASTATINUM [Concomitant]
     Active Substance: ROSUVASTATIN
     Indication: HYPERLIPIDAEMIA
     Route: 048
  3. EZETIMIBUM [Concomitant]
     Indication: HYPERLIPIDAEMIA
     Route: 048
  4. AZD6140 [Suspect]
     Active Substance: TICAGRELOR
     Indication: CARDIOVASCULAR EVENT PROPHYLAXIS
     Route: 048
     Dates: start: 20150626, end: 20151218
  5. AZD6140 [Suspect]
     Active Substance: TICAGRELOR
     Indication: CARDIOVASCULAR EVENT PROPHYLAXIS
     Route: 048
     Dates: start: 20151218, end: 20160201
  6. INSULIN GLARGINE [Concomitant]
     Active Substance: INSULIN GLARGINE
     Indication: TYPE 2 DIABETES MELLITUS
     Route: 058
  7. INSULINI ASPARTUM [Concomitant]
     Indication: TYPE 2 DIABETES MELLITUS
     Route: 058
  8. VALSARTANUM [Concomitant]
     Indication: HYPERTENSION
     Route: 048
     Dates: end: 20160225

REACTIONS (1)
  - Gastritis [Recovered/Resolved]

NARRATIVE: CASE EVENT DATE: 20160208
